FAERS Safety Report 13388561 (Version 1)
Quarter: 2017Q1

REPORT INFORMATION
  Report Type: Report from Study
  Country: US (occurrence: US)
  Receive Date: 20170330
  Receipt Date: 20170330
  Transmission Date: 20170429
  Serious: Yes (Other)
  Sender: FDA-Public Use
  Company Number: US-MALLINCKRODT-T201606787

PATIENT
  Sex: Female

DRUGS (1)
  1. REPOSITORY CORTICOTROPIN INJECTION [Suspect]
     Active Substance: CORTICOTROPIN
     Indication: FOCAL SEGMENTAL GLOMERULOSCLEROSIS
     Dosage: 80 UNITS / 1 ML, 2 TIMES PER WEEK
     Route: 058
     Dates: start: 20130921

REACTIONS (5)
  - Chronic kidney disease [Not Recovered/Not Resolved]
  - Weight increased [Not Recovered/Not Resolved]
  - Injection site scar [Not Recovered/Not Resolved]
  - Infection [Not Recovered/Not Resolved]
  - Injection site bruising [Not Recovered/Not Resolved]
